FAERS Safety Report 4586959-0 (Version None)
Quarter: 2005Q1

REPORT INFORMATION
  Report Type: 
  Country: None (occurrence: None)
  Receive Date: 20050218
  Receipt Date: 20041123
  Transmission Date: 20050727
  Serious: No
  Sender: FDA-Public Use
  Company Number: US-MERCK-0411USA03815

PATIENT
  Age: 68 Year
  Sex: Female
  Weight: 76 kg

DRUGS (6)
  1. ZOCOR [Suspect]
     Indication: BLOOD CHOLESTEROL INCREASED
     Route: 048
     Dates: start: 20040301, end: 20040801
  2. NEXIUM [Concomitant]
     Route: 065
  3. EVISTA [Concomitant]
     Route: 065
  4. ULTRAM [Concomitant]
     Route: 065
  5. XANAX [Concomitant]
     Route: 065
  6. IMITREX [Concomitant]
     Route: 065

REACTIONS (2)
  - PAIN [None]
  - PARAESTHESIA [None]
